FAERS Safety Report 9639681 (Version 1)
Quarter: 2013Q4

REPORT INFORMATION
  Report Type: Spontaneous
  Country: US (occurrence: US)
  Receive Date: 20131023
  Receipt Date: 20131023
  Transmission Date: 20140711
  Serious: No
  Sender: FDA-Public Use
  Company Number: US-009507513-1310USA006933

PATIENT
  Age: 52 Year
  Sex: Female

DRUGS (7)
  1. PEGINTRON [Suspect]
     Dosage: REDIPEN, 120 MCG ONCE PER WEEK
     Route: 058
  2. RIBAPAK [Suspect]
  3. ROXICODONE [Concomitant]
  4. METFORMIN [Concomitant]
  5. ALBUTEROL [Concomitant]
  6. ADVAIR [Concomitant]
  7. SPIRIVA [Concomitant]
     Dosage: HANDIHALER

REACTIONS (2)
  - Restlessness [Unknown]
  - Weight decreased [Unknown]
